FAERS Safety Report 7531553-2 (Version None)
Quarter: 2011Q2

REPORT INFORMATION
  Report Type: 
  Country: None (occurrence: None)
  Receive Date: 20110606
  Receipt Date: 20110606
  Transmission Date: 20111010
  Serious: No
  Sender: FDA-Public Use
  Company Number: None

PATIENT
  Age: 56 Year
  Sex: Male

DRUGS (9)
  1. MEGACE [Concomitant]
  2. EPZICOM [Suspect]
     Indication: HIV INFECTION
     Dates: start: 20060901, end: 20061212
  3. VIDEX EC [Suspect]
     Dates: start: 20060901, end: 20061212
  4. BACTRIM [Concomitant]
  5. PLETAL [Concomitant]
  6. RITONAVIR [Concomitant]
  7. FLUCONAZOLE [Suspect]
     Indication: CANDIDIASIS
     Dates: start: 20060901, end: 20061212
  8. DARUNAVIR ETHANOLATE [Suspect]
     Indication: HIV INFECTION
     Dates: start: 20060901, end: 20061212
  9. NAPROXAN [Concomitant]

REACTIONS (8)
  - DECREASED APPETITE [None]
  - NAUSEA [None]
  - LIVER INJURY [None]
  - WEIGHT DECREASED [None]
  - FATIGUE [None]
  - JAUNDICE [None]
  - DYSGEUSIA [None]
  - BLOOD BILIRUBIN INCREASED [None]
